FAERS Safety Report 19075630 (Version 2)
Quarter: 2021Q2

REPORT INFORMATION
  Report Type: Report from Study
  Country: US (occurrence: US)
  Receive Date: 20210331
  Receipt Date: 20210407
  Transmission Date: 20210717
  Serious: No
  Sender: FDA-Public Use
  Company Number: NVSC2021US064087

PATIENT
  Sex: Female

DRUGS (1)
  1. COSENTYX [Suspect]
     Active Substance: SECUKINUMAB
     Indication: PSORIATIC ARTHROPATHY
     Dosage: 300 MG, OTHER (ONCE A WEEK FOR 5 WEEKS AND THEN Q 4, BENEATH THE SKIN, USUALLY VIA INJECTION)
     Route: 058

REACTIONS (9)
  - Vomiting [Unknown]
  - Muscle tightness [Unknown]
  - Therapeutic response shortened [Unknown]
  - Inflammation [Unknown]
  - Nasal congestion [Unknown]
  - Abdominal pain [Unknown]
  - Arthralgia [Unknown]
  - Swelling [Unknown]
  - Diarrhoea [Unknown]
